FAERS Safety Report 8125896-1 (Version None)
Quarter: 2012Q1

REPORT INFORMATION
  Report Type: 
  Country: None (occurrence: None)
  Receive Date: 20120209
  Receipt Date: 20120202
  Transmission Date: 20120608
  Serious: Yes (Other)
  Sender: FDA-Public Use
  Company Number: US-ELI_LILLY_AND_COMPANY-US201110004512

PATIENT
  Sex: Female
  Weight: 72.562 kg

DRUGS (5)
  1. GLIPIZDE [Concomitant]
     Indication: DIABETES MELLITUS
     Dosage: 10 MG, UNK
     Dates: start: 20050101, end: 20110101
  2. CALCIUM CARBONATE [Concomitant]
     Indication: SUPPLEMENTATION THERAPY
  3. METFORMIN HCL [Concomitant]
     Indication: DIABETES MELLITUS
     Dosage: 1000 MG, QD
     Dates: start: 20050101, end: 20110101
  4. HG-INSULIN [Concomitant]
     Indication: DIABETES MELLITUS
     Dosage: UNK, PRN
     Dates: start: 20060101, end: 20110101
  5. BYETTA [Suspect]
     Dosage: UNK
     Dates: start: 20050501, end: 20070101

REACTIONS (3)
  - DIABETES MELLITUS [None]
  - PANCREATITIS [None]
  - OFF LABEL USE [None]
